FAERS Safety Report 6940867-6 (Version None)
Quarter: 2010Q3

REPORT INFORMATION
  Report Type: 
  Country: None (occurrence: None)
  Receive Date: 20100825
  Receipt Date: 20100817
  Transmission Date: 20110219
  Serious: Yes (Other)
  Sender: FDA-Public Use
  Company Number: JP-MERCK-1008USA02649

PATIENT
  Age: 80 Year
  Sex: Female

DRUGS (7)
  1. COZAAR [Suspect]
     Route: 048
     Dates: end: 20100801
  2. MEVAN [Concomitant]
     Indication: DYSLIPIDAEMIA
     Route: 048
  3. ALOSENN [Concomitant]
     Indication: CONSTIPATION
     Route: 048
  4. GASCON [Concomitant]
     Route: 048
  5. ASPIRIN [Concomitant]
     Route: 048
  6. OMEPRAZOLE [Concomitant]
     Route: 048
  7. VASOLAN [Concomitant]
     Route: 048

REACTIONS (1)
  - DRUG ERUPTION [None]
